FAERS Safety Report 6722204-5 (Version None)
Quarter: 2010Q2

REPORT INFORMATION
  Report Type: 
  Country: None (occurrence: None)
  Receive Date: 20100505
  Receipt Date: 20100325
  Transmission Date: 20101027
  Serious: No
  Sender: FDA-Public Use
  Company Number: WAES 1003USA04346

PATIENT
  Age: 24 Year
  Sex: Male

DRUGS (2)
  1. ISENTRESS [Suspect]
     Indication: HIV INFECTION
     Dosage: 400 MG BID PO
     Route: 048
     Dates: start: 20100311
  2. CELEXA [Suspect]
     Indication: DEPRESSION

REACTIONS (2)
  - FATIGUE [None]
  - NAUSEA [None]
